FAERS Safety Report 23369706 (Version 2)
Quarter: 2024Q1

REPORT INFORMATION
  Report Type: Spontaneous
  Country: US (occurrence: US)
  Receive Date: 20240105
  Receipt Date: 20240229
  Transmission Date: 20240410
  Serious: No
  Sender: FDA-Public Use
  Company Number: US-LUPIN PHARMACEUTICALS INC.-2023-11911

PATIENT

DRUGS (2)
  1. ALBUTEROL SULFATE [Suspect]
     Active Substance: ALBUTEROL SULFATE
     Indication: Chronic obstructive pulmonary disease
     Dosage: UNK, PRN 8 PUFFS A DAY
     Dates: start: 2023
  2. ALBUTEROL SULFATE [Suspect]
     Active Substance: ALBUTEROL SULFATE
     Dosage: UNK, PRN 8 PUFFS A DAY
     Dates: start: 2023

REACTIONS (4)
  - Panic attack [Unknown]
  - Drug dose omission by device [Unknown]
  - Device occlusion [Unknown]
  - Wrong technique in product usage process [Unknown]
